FAERS Safety Report 5860306-6 (Version None)
Quarter: 2008Q3

REPORT INFORMATION
  Report Type: 
  Country: None (occurrence: None)
  Receive Date: 20080827
  Receipt Date: 20070824
  Transmission Date: 20090109
  Serious: No
  Sender: FDA-Public Use
  Company Number: US-ABBOTT-07P-163-0414967-00

PATIENT
  Sex: Female

DRUGS (4)
  1. COATED PDS [Suspect]
     Indication: HIGH DENSITY LIPOPROTEIN DECREASED
     Route: 048
     Dates: start: 20070814
  2. SERETIDE [Concomitant]
     Indication: ASTHMA
     Route: 055
  3. TIOTROPIUM BROMIDE [Concomitant]
     Indication: ASTHMA
     Route: 055
  4. PRINZIDE [Concomitant]
     Indication: BLOOD PRESSURE INCREASED
     Dosage: 20MG/12.5MG
     Route: 048

REACTIONS (3)
  - ERYTHEMA [None]
  - FLUSHING [None]
  - PRURITUS [None]
